FAERS Safety Report 20176695 (Version 3)
Quarter: 2022Q1

REPORT INFORMATION
  Report Type: Spontaneous
  Country: GB (occurrence: GB)
  Receive Date: 20211213
  Receipt Date: 20220127
  Transmission Date: 20220424
  Serious: Yes (Other)
  Sender: FDA-Public Use
  Company Number: None

PATIENT
  Sex: Female

DRUGS (2)
  1. ATORVASTATIN CALCIUM [Suspect]
     Active Substance: ATORVASTATIN CALCIUM
     Indication: Product used for unknown indication
     Dosage: 40 MG
     Route: 065
  2. ATORVASTATIN CALCIUM [Suspect]
     Active Substance: ATORVASTATIN CALCIUM
     Indication: Product used for unknown indication
     Dosage: 40MG
     Route: 065

REACTIONS (7)
  - Vomiting [Unknown]
  - Product use complaint [Unknown]
  - Nausea [Unknown]
  - Taste disorder [Unknown]
  - Retching [Unknown]
  - Product coating issue [Unknown]
  - Poor quality product administered [Unknown]
